FAERS Safety Report 24657284 (Version 6)
Quarter: 2025Q3

REPORT INFORMATION
  Report Type: Spontaneous
  Country: EU (occurrence: EU)
  Receive Date: 20241125
  Receipt Date: 20250708
  Transmission Date: 20251020
  Serious: Yes (Death, Other)
  Sender: AUROBINDO
  Company Number: EU-BRISTOL-MYERS SQUIBB COMPANY-2024-164810

PATIENT
  Age: 59 Year
  Sex: Female
  Weight: 64.5 kg

DRUGS (42)
  1. OXALIPLATIN [Suspect]
     Active Substance: OXALIPLATIN
     Indication: Oesophageal adenocarcinoma
     Route: 042
     Dates: start: 20231025, end: 20240110
  2. FLUOROURACIL [Suspect]
     Active Substance: FLUOROURACIL
     Indication: Oesophageal adenocarcinoma
     Route: 042
     Dates: start: 20231025, end: 20240216
  3. OPDIVO [Suspect]
     Active Substance: NIVOLUMAB
     Indication: Oesophageal adenocarcinoma
     Route: 042
     Dates: start: 20231025, end: 20240416
  4. PIPERACILLIN SODIUM\TAZOBACTAM SODIUM [Suspect]
     Active Substance: PIPERACILLIN SODIUM\TAZOBACTAM SODIUM
     Indication: Kidney infection
     Route: 065
  5. DEXAMETHASONE [Concomitant]
     Active Substance: DEXAMETHASONE
     Indication: Prophylaxis
     Route: 048
     Dates: start: 20231108, end: 20231110
  6. DEXAMETHASONE [Concomitant]
     Active Substance: DEXAMETHASONE
     Route: 048
     Dates: start: 20231025, end: 20231027
  7. DEXAMETHASONE [Concomitant]
     Active Substance: DEXAMETHASONE
     Route: 048
     Dates: start: 20231228, end: 20231230
  8. DEXAMETHASONE [Concomitant]
     Active Substance: DEXAMETHASONE
     Route: 048
     Dates: start: 20240201, end: 20240201
  9. DEXAMETHASONE [Concomitant]
     Active Substance: DEXAMETHASONE
     Route: 048
     Dates: start: 20240202, end: 20240202
  10. DEXAMETHASONE [Concomitant]
     Active Substance: DEXAMETHASONE
     Route: 048
     Dates: start: 20240215, end: 20240215
  11. DEXAMETHASONE [Concomitant]
     Active Substance: DEXAMETHASONE
     Route: 048
     Dates: start: 20240216, end: 20240216
  12. GRANISETRON [Concomitant]
     Active Substance: GRANISETRON
     Indication: Prophylaxis
     Route: 048
     Dates: start: 20231108, end: 20231108
  13. GRANISETRON [Concomitant]
     Active Substance: GRANISETRON
     Route: 048
     Dates: start: 20231025, end: 20231025
  14. GRANISETRON [Concomitant]
     Active Substance: GRANISETRON
     Route: 048
     Dates: start: 20231228, end: 20231228
  15. GRANISETRON [Concomitant]
     Active Substance: GRANISETRON
     Route: 048
     Dates: start: 20240202, end: 20240202
  16. GRANISETRON [Concomitant]
     Active Substance: GRANISETRON
     Route: 048
     Dates: start: 20240215, end: 20240215
  17. LEUCOVORIN CALCIUM [Concomitant]
     Active Substance: LEUCOVORIN CALCIUM
     Indication: Product used for unknown indication
     Route: 042
     Dates: start: 20231108, end: 20231109
  18. LEUCOVORIN CALCIUM [Concomitant]
     Active Substance: LEUCOVORIN CALCIUM
     Route: 042
     Dates: start: 20231122, end: 20231123
  19. LEUCOVORIN CALCIUM [Concomitant]
     Active Substance: LEUCOVORIN CALCIUM
     Route: 042
     Dates: start: 20231025, end: 20231026
  20. LEUCOVORIN CALCIUM [Concomitant]
     Active Substance: LEUCOVORIN CALCIUM
     Route: 042
     Dates: start: 20231206, end: 20231207
  21. LEUCOVORIN CALCIUM [Concomitant]
     Active Substance: LEUCOVORIN CALCIUM
     Route: 042
     Dates: start: 20231228, end: 20231229
  22. LEUCOVORIN CALCIUM [Concomitant]
     Active Substance: LEUCOVORIN CALCIUM
     Route: 042
     Dates: start: 20240110, end: 20240111
  23. LEUCOVORIN CALCIUM [Concomitant]
     Active Substance: LEUCOVORIN CALCIUM
     Route: 042
     Dates: start: 20240201, end: 20240201
  24. LEUCOVORIN CALCIUM [Concomitant]
     Active Substance: LEUCOVORIN CALCIUM
     Route: 042
     Dates: start: 20240202, end: 20240202
  25. LEUCOVORIN CALCIUM [Concomitant]
     Active Substance: LEUCOVORIN CALCIUM
     Route: 042
     Dates: start: 20240215, end: 20240215
  26. LEUCOVORIN CALCIUM [Concomitant]
     Active Substance: LEUCOVORIN CALCIUM
     Route: 042
     Dates: start: 20240216, end: 20240216
  27. MCP [Concomitant]
     Active Substance: METOCLOPRAMIDE HYDROCHLORIDE
     Indication: Adverse event
     Route: 048
     Dates: start: 20231106, end: 20231108
  28. MOVICOL [Concomitant]
     Active Substance: POLYETHYLENE GLYCOL 3350\POTASSIUM CHLORIDE\SODIUM BICARBONATE\SODIUM CHLORIDE
     Indication: Adverse event
     Route: 048
     Dates: start: 20231107, end: 20231107
  29. MOVICOL [Concomitant]
     Active Substance: POLYETHYLENE GLYCOL 3350\POTASSIUM CHLORIDE\SODIUM BICARBONATE\SODIUM CHLORIDE
     Indication: Product used for unknown indication
     Route: 048
  30. PREDNISOLONE [Concomitant]
     Active Substance: PREDNISOLONE
     Indication: Prophylaxis
     Route: 042
     Dates: start: 20231122, end: 20231122
  31. PREDNISOLONE [Concomitant]
     Active Substance: PREDNISOLONE
     Route: 042
     Dates: start: 20231206, end: 20231206
  32. DIMETHINDENE [Concomitant]
     Active Substance: DIMETHINDENE
     Indication: Prophylaxis
     Route: 042
     Dates: start: 20231122, end: 20231122
  33. DIMETHINDENE [Concomitant]
     Active Substance: DIMETHINDENE
     Route: 042
     Dates: start: 20231206, end: 20231206
  34. APREPITANT [Concomitant]
     Active Substance: APREPITANT
     Indication: Product used for unknown indication
     Dosage: 125 MILLIGRAM, ONCE A DAY
     Route: 048
     Dates: start: 20231228, end: 20231228
  35. HYDROMORPHONE [Concomitant]
     Active Substance: HYDROMORPHONE
     Indication: Product used for unknown indication
     Route: 048
  36. FRESUBIN [Concomitant]
     Active Substance: AMINO ACIDS\DEXTROSE\ELECTROLYTES NOS\SOYBEAN OIL\VITAMINS
     Indication: Product used for unknown indication
     Route: 048
  37. PANTOZOL [Concomitant]
     Active Substance: PANTOPRAZOLE SODIUM
     Indication: Prophylaxis
     Route: 048
  38. Schwedentabletten [Concomitant]
     Indication: Product used for unknown indication
     Dosage: 1 GRAM, ONCE A DAY
     Route: 048
  39. METOCLOPRAMIDE HYDROCHLORIDE [Concomitant]
     Active Substance: METOCLOPRAMIDE HYDROCHLORIDE
     Indication: Product used for unknown indication
     Route: 048
     Dates: start: 20231106, end: 20231108
  40. DIMETHICONE [Concomitant]
     Active Substance: DIMETHICONE
     Indication: Product used for unknown indication
     Route: 048
  41. METAMIZOL [Concomitant]
     Active Substance: METAMIZOLE SODIUM
     Indication: Product used for unknown indication
     Route: 048
  42. ENOXAPARIN [Concomitant]
     Active Substance: ENOXAPARIN
     Indication: Prophylaxis
     Dosage: 40 MILLIGRAM, ONCE A DAY
     Route: 058
     Dates: start: 20231101, end: 20231122

REACTIONS (7)
  - Sepsis [Fatal]
  - Acute kidney injury [Fatal]
  - Ileus [Fatal]
  - Kidney infection [Fatal]
  - Fistula [Fatal]
  - Hepatic function abnormal [Fatal]
  - Neutropenia [Recovered/Resolved]

NARRATIVE: CASE EVENT DATE: 20240122
